FAERS Safety Report 7621483-X (Version None)
Quarter: 2011Q3

REPORT INFORMATION
  Report Type: 
  Country: None (occurrence: None)
  Receive Date: 20110719
  Receipt Date: 20110712
  Transmission Date: 20111222
  Serious: No
  Sender: FDA-Public Use
  Company Number: US-B.I. PHARMACEUTICALS,INC./RIDGEFIELD-2011-BP-01344BP

PATIENT
  Sex: Female

DRUGS (21)
  1. AMBIEN [Concomitant]
     Indication: SLEEP DISORDER
  2. PRADAXA [Suspect]
     Indication: ATRIAL FIBRILLATION
     Dosage: 300 MG
     Route: 048
     Dates: start: 20110101
  3. PRADAXA [Suspect]
     Indication: ANTICOAGULANT THERAPY
  4. PROVENT INHALER [Concomitant]
     Indication: ASTHMA
  5. SPIRONOLACTONE [Concomitant]
     Indication: CARDIAC FAILURE
     Dosage: 50 MG
  6. MIRALAX [Concomitant]
     Indication: CONSTIPATION
  7. OXYCODONE HCL AND ACETAMINOPHEN [Concomitant]
  8. COZAAR [Concomitant]
     Indication: HYPERTENSION
     Dosage: 100 MG
  9. MAGNESIUM [Concomitant]
     Indication: SUPPLEMENTATION THERAPY
  10. FLONASE [Concomitant]
     Indication: ASTHMA
  11. SIMVASTATIN [Concomitant]
     Indication: BLOOD CHOLESTEROL INCREASED
     Dosage: 20 MG
  12. CO Q-10 [Concomitant]
     Indication: SUPPLEMENTATION THERAPY
     Dosage: 100 MG
  13. ZANTAC [Concomitant]
     Dosage: 300 MG
  14. VALIUM [Concomitant]
     Indication: MUSCLE SPASMS
  15. LASIX [Concomitant]
     Indication: CARDIAC FAILURE
     Dosage: 360 MG
  16. K-DUR (POTASSIUM) [Concomitant]
     Indication: SUPPLEMENTATION THERAPY
     Dosage: 100 MEQ
  17. SOMA [Concomitant]
     Indication: MUSCLE SPASMS
  18. FLECAINIDE ACETATE [Concomitant]
     Indication: ATRIAL FIBRILLATION
     Dosage: 150 MG
  19. PRADAXA [Suspect]
     Indication: DRUG THERAPY CHANGED
  20. FLOVENT [Concomitant]
     Indication: ASTHMA
     Dosage: 4 PUF
  21. MULTI-VITAMIN [Concomitant]

REACTIONS (7)
  - GINGIVAL SWELLING [None]
  - ABDOMINAL DISCOMFORT [None]
  - GAIT DISTURBANCE [None]
  - ARTHRALGIA [None]
  - ABDOMINAL PAIN UPPER [None]
  - STOMATITIS [None]
  - GASTROOESOPHAGEAL REFLUX DISEASE [None]
